FAERS Safety Report 25242870 (Version 1)
Quarter: 2025Q2

REPORT INFORMATION
  Report Type: Report from Study
  Country: US (occurrence: US)
  Receive Date: 20250427
  Receipt Date: 20250427
  Transmission Date: 20250717
  Serious: Yes (Hospitalization)
  Sender: ABBVIE
  Company Number: US-ABBVIE-6248253

PATIENT
  Sex: Male

DRUGS (1)
  1. RINVOQ [Suspect]
     Active Substance: UPADACITINIB
     Indication: Rheumatoid arthritis
     Dosage: TAKE 1 TABLET BY MOUTH ONCE DAILY
     Route: 048
     Dates: start: 202410

REACTIONS (2)
  - Juvenile idiopathic arthritis [Unknown]
  - Gastrointestinal disorder [Unknown]
